FAERS Safety Report 5611786-2 (Version None)
Quarter: 2008Q1

REPORT INFORMATION
  Report Type: 
  Country: None (occurrence: None)
  Receive Date: 20080204
  Receipt Date: 20080103
  Transmission Date: 20080703
  Serious: No
  Sender: FDA-Public Use
  Company Number: US-BAYER-200810542NA

PATIENT
  Sex: Female

DRUGS (1)
  1. YAZ [Suspect]
     Route: 048
     Dates: start: 20070601

REACTIONS (3)
  - DIZZINESS [None]
  - DYSPNOEA [None]
  - NAUSEA [None]
